FAERS Safety Report 9031112 (Version 1)
Quarter: 2013Q1

REPORT INFORMATION
  Report Type: Spontaneous
  Country: US (occurrence: US)
  Receive Date: 20130123
  Receipt Date: 20130123
  Transmission Date: 20140127
  Serious: Yes (Hospitalization)
  Sender: FDA-Public Use
  Company Number: US-BAYER-2013-008244

PATIENT
  Age: 47 Year
  Sex: Female
  Weight: 85.26 kg

DRUGS (12)
  1. YASMIN [Suspect]
     Indication: CONTRACEPTION
  2. MULTIVITAMIN [Concomitant]
  3. CALCIUM [CALCIUM CARBONATE] [Concomitant]
  4. CHANTIX [Concomitant]
     Indication: SMOKING CESSATION THERAPY
  5. XANAX [Concomitant]
     Dosage: 1 MG, 2 AT HS
  6. FLEXERIL [Concomitant]
  7. NEURONTIN [Concomitant]
  8. TORADOL [Concomitant]
     Dosage: 60 MG, UNK
     Route: 030
     Dates: start: 20070716
  9. VICODIN [Concomitant]
     Dosage: 1-2 Q 4-6 H
  10. NAPROXEN [Concomitant]
  11. DARVOCET [Concomitant]
  12. ALBUTEROL [Concomitant]

REACTIONS (1)
  - Pulmonary embolism [None]
